FAERS Safety Report 15671741 (Version 3)
Quarter: 2019Q1

REPORT INFORMATION
  Report Type: Spontaneous
  Country: GR (occurrence: GR)
  Receive Date: 20181129
  Receipt Date: 20190121
  Transmission Date: 20190417
  Serious: Yes (Hospitalization, Other)
  Sender: FDA-Public Use
  Company Number: GR-SA-2018SA323635

PATIENT
  Age: 49 Year
  Sex: Male

DRUGS (7)
  1. ISONIAZID. [Suspect]
     Active Substance: ISONIAZID
     Indication: PERICARDITIS TUBERCULOUS
     Dosage: UNK (CONTINUED FOR AN ADDITIONAL 7 MONTHS)
  2. PYRAZINAMIDE. [Suspect]
     Active Substance: PYRAZINAMIDE
     Indication: PERICARDITIS TUBERCULOUS
     Dosage: UNK
  3. STREPTOMYCIN [Suspect]
     Active Substance: STREPTOMYCIN\STREPTOMYCIN SULFATE
     Dosage: UNK
  4. RIFAMPICIN [Suspect]
     Active Substance: RIFAMPIN
     Indication: PERICARDITIS TUBERCULOUS
     Dosage: UNK (CONTINUED FOR AN ADDITIONAL 7 MONTHS)
  5. METHOTREXATE SODIUM. [Concomitant]
     Active Substance: METHOTREXATE SODIUM
     Indication: PSORIATIC ARTHROPATHY
     Dosage: INITIATED ONE YEAR EARLIER
  6. INFLIXIMAB [Suspect]
     Active Substance: INFLIXIMAB
     Indication: PSORIATIC ARTHROPATHY
     Dosage: UNK, Q2M, POWDER FOR INJECTION
     Route: 042
  7. STREPTOMYCIN [Suspect]
     Active Substance: STREPTOMYCIN\STREPTOMYCIN SULFATE
     Indication: PERICARDITIS TUBERCULOUS
     Dosage: UNK
     Route: 065

REACTIONS (7)
  - Pericarditis tuberculous [Recovered/Resolved]
  - Immune reconstitution inflammatory syndrome associated tuberculosis [Recovered/Resolved]
  - Pleural effusion [Recovered/Resolved]
  - Lymph node tuberculosis [Recovered/Resolved]
  - Necrosis [Recovered/Resolved]
  - Immune reconstitution inflammatory syndrome [Recovered/Resolved]
  - Pericardial effusion [Recovered/Resolved]
